FAERS Safety Report 5739629-7 (Version None)
Quarter: 2008Q2

REPORT INFORMATION
  Report Type: 
  Country: None (occurrence: None)
  Receive Date: 20080513
  Receipt Date: 20080429
  Transmission Date: 20081010
  Serious: Yes (Death, Hospitalization)
  Sender: FDA-Public Use
  Company Number: TAP2008Q00522

PATIENT
  Age: 75 Year
  Sex: Male

DRUGS (1)
  1. LUPRON DEPOT-4 [Suspect]
     Indication: PROSTATE CANCER
     Dosage: 30 MG (30 MG,1 IN 4M)
     Dates: start: 20080226, end: 20080226

REACTIONS (2)
  - LUNG NEOPLASM MALIGNANT [None]
  - PULMONARY OEDEMA [None]
